FAERS Safety Report 6685902-8 (Version None)
Quarter: 2010Q2

REPORT INFORMATION
  Report Type: 
  Country: None (occurrence: None)
  Receive Date: 20100419
  Receipt Date: 20100407
  Transmission Date: 20101027
  Serious: Yes (Other)
  Sender: FDA-Public Use
  Company Number: CA-JNJFOC-20100402071

PATIENT
  Age: 47 Year
  Sex: Female

DRUGS (3)
  1. INFLIXIMAB [Suspect]
     Indication: MALABSORPTION
     Route: 042
  2. INFLIXIMAB [Suspect]
     Indication: IMMUNODEFICIENCY COMMON VARIABLE
     Route: 042
  3. AZATHIOPRINE [Concomitant]

REACTIONS (1)
  - CYTOMEGALOVIRUS INFECTION [None]
